FAERS Safety Report 9803370 (Version 1)
Quarter: 2014Q1

REPORT INFORMATION
  Report Type: Report from Study
  Country: US (occurrence: US)
  Receive Date: 20140108
  Receipt Date: 20140108
  Transmission Date: 20141002
  Serious: Yes (Death)
  Sender: FDA-Public Use
  Company Number: PHEH2014US000647

PATIENT
  Sex: Female

DRUGS (5)
  1. AFINITOR [Suspect]
     Dosage: 10 MG, QD
     Route: 048
     Dates: start: 20121218
  2. CALTRATE + D                       /00944201/ [Concomitant]
  3. EXEMESTANE [Concomitant]
  4. TYLENOL [Concomitant]
  5. ZOMETA [Concomitant]

REACTIONS (1)
  - Death [Fatal]
